FAERS Safety Report 19760672 (Version 1)
Quarter: 2021Q3

REPORT INFORMATION
  Report Type: Spontaneous
  Country: JP (occurrence: JP)
  Receive Date: 20210830
  Receipt Date: 20210830
  Transmission Date: 20211014
  Serious: Yes (Hospitalization, Other)
  Sender: FDA-Public Use
  Company Number: JP-STRIDES ARCOLAB LIMITED-2021SP026851

PATIENT
  Age: 29 Year
  Sex: Female
  Weight: 47.9 kg

DRUGS (10)
  1. WARFARIN [Concomitant]
     Active Substance: WARFARIN
     Indication: ARTERIAL OCCLUSIVE DISEASE
     Dosage: 1 MILLIGRAM
     Route: 065
  2. REBAMIPIDE [Concomitant]
     Active Substance: REBAMIPIDE
     Indication: PRODUCT USED FOR UNKNOWN INDICATION
     Dosage: 3 DOSAGE FORM
     Route: 048
  3. CYCLOSPORINE. [Suspect]
     Active Substance: CYCLOSPORINE
     Indication: IMMUNOSUPPRESSANT DRUG THERAPY
     Dosage: UNK
     Route: 065
  4. ESOMEPRAZOLE MAGNESIUM DIHYDRATE [Concomitant]
     Active Substance: ESOMEPRAZOLE MAGNESIUM
     Indication: PRODUCT USED FOR UNKNOWN INDICATION
     Dosage: 20 MILLIGRAM
     Route: 048
  5. PREDNISOLONE. [Suspect]
     Active Substance: PREDNISOLONE
     Dosage: DOSE WAS SLOWLY TAPERED (1.0?2.0 MG/DAY EVERY 1?2 MONTHS UNTIL REACHING 2.0 MG/DAY)
     Route: 065
  6. OMEGA 3 ACID ETHYL ESTERS [Concomitant]
     Active Substance: OMEGA-3-ACID ETHYL ESTERS
     Indication: PRODUCT USED FOR UNKNOWN INDICATION
     Dosage: 4 GRAM
     Route: 048
  7. FLUVASTATIN SODIUM. [Concomitant]
     Active Substance: FLUVASTATIN SODIUM
     Indication: PRODUCT USED FOR UNKNOWN INDICATION
     Dosage: UNK
     Route: 048
  8. PREDNISOLONE. [Suspect]
     Active Substance: PREDNISOLONE
     Indication: NEPHROTIC SYNDROME
     Dosage: 2 MILLIGRAM PER DAY
     Route: 065
  9. PREDNISOLONE. [Suspect]
     Active Substance: PREDNISOLONE
     Indication: GLOMERULONEPHRITIS
     Dosage: REPEATEDLY INCREASING DOSES
     Route: 065
  10. FUROSEMIDE. [Concomitant]
     Active Substance: FUROSEMIDE
     Indication: PRODUCT USED FOR UNKNOWN INDICATION
     Dosage: UNK
     Route: 048

REACTIONS (7)
  - Hypercalcaemia [Recovered/Resolved]
  - Influenza [Unknown]
  - Menopause [Unknown]
  - Adrenal insufficiency [Recovered/Resolved]
  - Cushingoid [Unknown]
  - Drug withdrawal syndrome [Recovered/Resolved]
  - Hypoglycaemia [Recovered/Resolved]
